FAERS Safety Report 9156651 (Version 2)
Quarter: 2013Q1

REPORT INFORMATION
  Report Type: Spontaneous
  Country: US (occurrence: None)
  Receive Date: 20130211
  Receipt Date: 20130221
  Transmission Date: 20140127
  Serious: Yes (Hospitalization)
  Sender: FDA-Public Use
  Company Number: 2013SUN00061

PATIENT
  Age: 70 Year
  Sex: Male
  Weight: 107.2 kg

DRUGS (10)
  1. METFORMIN HCL 500MG TABLETS (METFORMIN HYDROCHLORIDE) TABLET, 500MG HYDROCHLORIDE [Suspect]
     Indication: TYPE 2 DIABETES MELLITUS
     Route: 048
     Dates: start: 20100805, end: 20120419
  2. BLINDED GLIPIZIDE (GLIPIZIDE) [Suspect]
     Indication: TYPE 2 DIABETES MELLITUS
     Route: 048
     Dates: start: 20100901, end: 20120419
  3. BENICAR [Concomitant]
  4. CIPRO [Concomitant]
  5. FENOFIBRATE [Concomitant]
  6. FLEXERIL [Concomitant]
  7. FLOMAX [Concomitant]
  8. OMEPRAZOLE [Concomitant]
  9. PRAVASTATIN [Concomitant]
  10. ZETIA [Concomitant]

REACTIONS (1)
  - Pancreatitis acute [None]
